FAERS Safety Report 7275356-5 (Version None)
Quarter: 2011Q1

REPORT INFORMATION
  Report Type: 
  Country: None (occurrence: None)
  Receive Date: 20110204
  Receipt Date: 20110125
  Transmission Date: 20110831
  Serious: No
  Sender: FDA-Public Use
  Company Number: US-ELI_LILLY_AND_COMPANY-US201012006451

PATIENT
  Sex: Male
  Weight: 124.26 kg

DRUGS (2)
  1. ANTIHYPERTENSIVES [Concomitant]
     Indication: HYPERTENSION
     Dosage: UNK, UNKNOWN
  2. CYMBALTA [Suspect]
     Indication: DEPRESSION
     Dosage: 60 MG, DAILY (1/D)
     Dates: start: 20060101

REACTIONS (2)
  - WRONG TECHNIQUE IN DRUG USAGE PROCESS [None]
  - CARPAL TUNNEL DECOMPRESSION [None]
